FAERS Safety Report 14145456 (Version 2)
Quarter: 2017Q4

REPORT INFORMATION
  Report Type: Report from Study
  Country: US (occurrence: BR)
  Receive Date: 20171031
  Receipt Date: 20171103
  Transmission Date: 20180321
  Serious: Yes (Death, Life-Threatening, Hospitalization, Other)
  Sender: FDA-Public Use
  Company Number: US-SUNOVION-2017SUN004723

PATIENT
  Sex: Female
  Weight: 29 kg

DRUGS (1)
  1. INDACATEROL AND GLYCOPYRROLATE [Suspect]
     Active Substance: GLYCOPYRROLATE\INDACATEROL MALEATE
     Indication: PULMONARY FIBROSIS
     Dosage: 1 DF (GLYCOPYRRONIUM BROMIDE 50 UG / INDACATEROL 110 UG), QD
     Route: 055

REACTIONS (5)
  - Body height decreased [Unknown]
  - Terminal state [Unknown]
  - Death [Fatal]
  - Product use in unapproved indication [Unknown]
  - Disease complication [Unknown]
